FAERS Safety Report 4450181-9 (Version None)
Quarter: 2004Q3

REPORT INFORMATION
  Report Type: 
  Country: None (occurrence: None)
  Receive Date: 20040914
  Receipt Date: 20040830
  Transmission Date: 20050211
  Serious: Yes (Hospitalization)
  Sender: FDA-Public Use
  Company Number: 202916

PATIENT
  Sex: Female
  Weight: 59.8748 kg

DRUGS (1)
  1. AVONEX [Suspect]
     Indication: MULTIPLE SCLEROSIS
     Dosage: 30 MCG QW IM
     Route: 030
     Dates: start: 20021001, end: 20040701

REACTIONS (5)
  - GAIT DISTURBANCE [None]
  - NEPHRITIS [None]
  - PYREXIA [None]
  - SLEEP DISORDER [None]
  - URINARY INCONTINENCE [None]
